FAERS Safety Report 14661325 (Version 1)
Quarter: 2018Q1

REPORT INFORMATION
  Report Type: Spontaneous
  Country: FR (occurrence: FR)
  Receive Date: 20180320
  Receipt Date: 20180320
  Transmission Date: 20180509
  Serious: Yes (Life-Threatening)
  Sender: FDA-Public Use
  Company Number: FR-B. BRAUN MEDICAL INC.-2044150

PATIENT
  Age: 71 Year
  Sex: Female
  Weight: 70 kg

DRUGS (7)
  1. NIMBEX [Suspect]
     Active Substance: CISATRACURIUM BESYLATE
     Route: 042
  2. KETOPROFEN. [Suspect]
     Active Substance: KETOPROFEN
     Route: 042
  3. SUFENTANIL CITRATE. [Suspect]
     Active Substance: SUFENTANIL CITRATE
     Route: 042
  4. PROPOFOL. [Suspect]
     Active Substance: PROPOFOL
  5. PARACETAMOL [Suspect]
     Active Substance: ACETAMINOPHEN
     Route: 042
  6. LACTATED RINGERS SOLUTION [Suspect]
     Active Substance: CALCIUM CHLORIDE\POTASSIUM CHLORIDE\SODIUM CHLORIDE\SODIUM LACTATE
     Indication: PRODUCT USED FOR UNKNOWN INDICATION
  7. BLEU PATENTE V GUERBET C.I. 40251 [Suspect]
     Active Substance: PATENT BLUE V
     Route: 042

REACTIONS (1)
  - Anaphylactoid shock [Not Recovered/Not Resolved]

NARRATIVE: CASE EVENT DATE: 20180215
